FAERS Safety Report 4297113-4 (Version None)
Quarter: 2004Q1

REPORT INFORMATION
  Report Type: 
  Country: None (occurrence: None)
  Receive Date: 20040213
  Receipt Date: 20040205
  Transmission Date: 20041129
  Serious: Yes (Other)
  Sender: FDA-Public Use
  Company Number: 2004007893

PATIENT
  Age: 32 Year
  Sex: Male
  Weight: 65.7716 kg

DRUGS (2)
  1. DILANTIN KAPSEAL [Suspect]
     Indication: CONVULSION
     Dosage: 400 MG (DAILY), ORAL
     Route: 048
     Dates: start: 20031001
  2. ANALGESIC LIQ [Concomitant]

REACTIONS (3)
  - CONDITION AGGRAVATED [None]
  - CONVULSION [None]
  - FEELING ABNORMAL [None]
